FAERS Safety Report 6647724-3 (Version None)
Quarter: 2010Q1

REPORT INFORMATION
  Report Type: 
  Country: None (occurrence: None)
  Receive Date: 20100323
  Receipt Date: 20100323
  Transmission Date: 20100710
  Serious: Yes (Life-Threatening)
  Sender: FDA-Public Use
  Company Number: None

PATIENT
  Sex: Female
  Weight: 68.0396 kg

DRUGS (2)
  1. LEVAQUIN [Suspect]
     Indication: FACE INJURY
     Dosage: 500 MG TAB. 1 TABLET DAILY MOUTH
     Route: 048
     Dates: start: 20100219, end: 20100227
  2. LEVAQUIN [Suspect]
     Indication: INFECTION
     Dosage: 500 MG TAB. 1 TABLET DAILY MOUTH
     Route: 048
     Dates: start: 20100219, end: 20100227

REACTIONS (5)
  - ANXIETY [None]
  - DIZZINESS [None]
  - EMOTIONAL DISTRESS [None]
  - FEAR OF FALLING [None]
  - FEELING ABNORMAL [None]
